FAERS Safety Report 15325456 (Version 1)
Quarter: 2018Q3

REPORT INFORMATION
  Report Type: Spontaneous
  Country: GB (occurrence: GB)
  Receive Date: 20180828
  Receipt Date: 20180828
  Transmission Date: 20181010
  Serious: Yes (Other)
  Sender: FDA-Public Use
  Company Number: GB-GLAXOSMITHKLINE-GB2018151237

PATIENT
  Age: 3 Year
  Sex: Male

DRUGS (1)
  1. MUPIROCIN. [Suspect]
     Active Substance: MUPIROCIN
     Indication: PRODUCT USED FOR UNKNOWN INDICATION
     Dosage: 2% W/W
     Route: 065

REACTIONS (5)
  - Pain [Unknown]
  - Emotional distress [Unknown]
  - Thermal burn [Unknown]
  - Off label use [Unknown]
  - Rhinitis [Unknown]
